FAERS Safety Report 7048258-7 (Version None)
Quarter: 2010Q4

REPORT INFORMATION
  Report Type: 
  Country: None (occurrence: None)
  Receive Date: 20101015
  Receipt Date: 20091027
  Transmission Date: 20110411
  Serious: No
  Sender: FDA-Public Use
  Company Number: US-PFIZER INC-2009290237

PATIENT
  Sex: Male

DRUGS (1)
  1. INSPRA [Suspect]
     Dosage: UNK MG, UNK

REACTIONS (2)
  - DRUG EFFECT DECREASED [None]
  - PHOTOSENSITIVITY REACTION [None]
